FAERS Safety Report 9524497 (Version 3)
Quarter: 2013Q4

REPORT INFORMATION
  Report Type: Spontaneous
  Country: US (occurrence: US)
  Receive Date: 20130916
  Receipt Date: 20131122
  Transmission Date: 20140711
  Serious: No
  Sender: FDA-Public Use
  Company Number: US-PFIZER INC-2013263966

PATIENT
  Age: 76 Year
  Sex: Female

DRUGS (2)
  1. NITROSTAT [Suspect]
     Indication: CHEST PAIN
     Dosage: 0.4 MG, AS NEEDED
     Route: 060
     Dates: start: 20120801
  2. NITROSTAT [Suspect]
     Indication: ANGINA PECTORIS

REACTIONS (2)
  - Product taste abnormal [Unknown]
  - Oral discomfort [Unknown]
